FAERS Safety Report 5526379-5 (Version None)
Quarter: 2007Q4

REPORT INFORMATION
  Report Type: 
  Country: None (occurrence: None)
  Receive Date: 20071127
  Receipt Date: 20071120
  Transmission Date: 20080405
  Serious: Yes (Hospitalization)
  Sender: FDA-Public Use
  Company Number: CH-WYE-H01355707

PATIENT
  Age: 78 Year
  Sex: Female

DRUGS (5)
  1. CORDARONE [Suspect]
     Indication: ATRIAL FIBRILLATION
     Route: 048
  2. CORDARONE [Interacting]
     Indication: ATRIAL FLUTTER
  3. EUTHYROX [Interacting]
     Indication: HYPOTHYROIDISM
     Route: 048
  4. SINTROM [Interacting]
     Indication: ATRIAL FIBRILLATION
     Dosage: DOSE AND FREQUENCY NOT SPECIFIED
     Route: 048
  5. SINTROM [Interacting]
     Indication: ATRIAL FLUTTER

REACTIONS (2)
  - DRUG INTERACTION [None]
  - EXTRADURAL HAEMATOMA [None]
